FAERS Safety Report 4337938-X (Version None)
Quarter: 2004Q2

REPORT INFORMATION
  Report Type: 
  Country: None (occurrence: None)
  Receive Date: 20040408
  Receipt Date: 20040322
  Transmission Date: 20050107
  Serious: Yes (Death, Life-Threatening, Hospitalization)
  Sender: FDA-Public Use
  Company Number: JP-JNJFOC-20040301708

PATIENT
  Age: 67 Year
  Sex: Male
  Weight: 56.5 kg

DRUGS (21)
  1. REMICADE [Suspect]
     Indication: RHEUMATOID ARTHRITIS
     Dosage: 3 MG/KG, 1 IN 1 AS NECESSARY, INTRAVENOUS DRIP
     Route: 041
     Dates: start: 20031204, end: 20031204
  2. REMICADE [Suspect]
     Indication: RHEUMATOID ARTHRITIS
     Dosage: 3 MG/KG, 1 IN 1 AS NECESSARY, INTRAVENOUS DRIP
     Route: 041
     Dates: start: 20031218, end: 20031218
  3. REMICADE [Suspect]
     Indication: RHEUMATOID ARTHRITIS
     Dosage: 3 MG/KG, 1 IN 1 AS NECESSARY, INTRAVENOUS DRIP
     Route: 041
     Dates: start: 20040114, end: 20040114
  4. RHEUMATREX [Suspect]
     Indication: RHEUMATOID ARTHRITIS
     Dosage: SEE IMAGE
     Route: 048
     Dates: start: 19970804, end: 19980901
  5. RHEUMATREX [Suspect]
     Indication: RHEUMATOID ARTHRITIS
     Dosage: SEE IMAGE
     Route: 048
     Dates: start: 19981001, end: 19990801
  6. RHEUMATREX [Suspect]
     Indication: RHEUMATOID ARTHRITIS
     Dosage: SEE IMAGE
     Route: 048
     Dates: start: 19990801, end: 20021001
  7. RHEUMATREX [Suspect]
     Indication: RHEUMATOID ARTHRITIS
     Dosage: SEE IMAGE
     Route: 048
     Dates: start: 20021023, end: 20031022
  8. RHEUMATREX [Suspect]
     Indication: RHEUMATOID ARTHRITIS
     Dosage: SEE IMAGE
     Route: 048
     Dates: start: 20031023, end: 20031101
  9. RHEUMATREX [Suspect]
     Indication: RHEUMATOID ARTHRITIS
     Dosage: SEE IMAGE
     Route: 048
     Dates: start: 20031120, end: 20040212
  10. MEDROL [Suspect]
     Indication: RHEUMATOID ARTHRITIS
     Dosage: 6 MG, IN 1 DAY, ORAL
     Route: 048
     Dates: start: 20001203, end: 20040213
  11. HYPEN (ETODOLAC) TABLETS [Concomitant]
  12. ONEALPHA (ALFACALCIDOL) TABLETS [Concomitant]
  13. CYTOTEC (MISOPROSTOL) TABLETS [Concomitant]
  14. OMEPRAL (OMEPRAZOLE) TABLETS [Concomitant]
  15. TINELAC (SENNOSIDE A+B) TABLETS [Concomitant]
  16. METHYCOBAL (MECOBALAMIN) TABLETS [Concomitant]
  17. WANARUFA (ALL OTHER THERAPEUTIC PRODUCTS) [Concomitant]
  18. OMEPRAZINE (ALL OTHER THERAPEUTIC PRODUCTS) [Concomitant]
  19. CHINERAKKU (ALL OTHER THERAPEUTIC PRODUCTS) [Concomitant]
  20. BAKUTA (ALL OTHER THERAPEUTIC PRODUCTS) [Concomitant]
  21. BENIRON (PRISCOPHEN) [Concomitant]

REACTIONS (23)
  - ADRENAL INSUFFICIENCY [None]
  - ASPARTATE AMINOTRANSFERASE INCREASED [None]
  - BLOOD LACTATE DEHYDROGENASE INCREASED [None]
  - BLOOD PRESSURE DECREASED [None]
  - CARDIAC ARREST [None]
  - DRUG INTERACTION [None]
  - GASTROINTESTINAL DISORDER [None]
  - GENERAL PHYSICAL HEALTH DETERIORATION [None]
  - HAEMATOCRIT DECREASED [None]
  - HAEMOGLOBIN DECREASED [None]
  - HYPERKALAEMIA [None]
  - HYPONATRAEMIA [None]
  - INTERSTITIAL LUNG DISEASE [None]
  - METABOLIC ACIDOSIS [None]
  - PNEUMOCYSTIS CARINII PNEUMONIA [None]
  - PNEUMONIA CHLAMYDIAL [None]
  - PNEUMONIA PRIMARY ATYPICAL [None]
  - PNEUMONITIS [None]
  - PROTEIN TOTAL DECREASED [None]
  - PULMONARY MYCOSIS [None]
  - RED BLOOD CELL COUNT DECREASED [None]
  - RESPIRATORY FAILURE [None]
  - SYSTEMIC INFLAMMATORY RESPONSE SYNDROME [None]
